FAERS Safety Report 6189775 (Version 4)
Quarter: 2012Q4

REPORT INFORMATION
  Report Type: Spontaneous
  Country: AU (occurrence: None)
  Receive Date: 20061130
  Receipt Date: 20120910
  Transmission Date: 20130627
  Serious: Yes (Hospitalization)
  Sender: FDA-Public Use
  Company Number: 2006-03030

PATIENT
  Age: 60 Year
  Sex: Female
  Weight: 96 kg

DRUGS (7)
  1. VELCADE [Suspect]
     Indication: MULTIPLE MYELOMA
     Route: 042
     Dates: start: 20060918, end: 20061215
  2. DEXAMETHASONE [Suspect]
     Indication: MULTIPLE MYELOMA
     Route: 048
     Dates: start: 20060918
  3. GLIMEPIRIDE [Concomitant]
  4. METFORMIN HYDROCHLORIDE [Concomitant]
  5. CLODRONATE DISODIUM (CLODRONATE DISODIUM) [Concomitant]
  6. SIMVASTATIN [Concomitant]
  7. PROTAPHANE MC (INSULIN INJECTION, ISOPHANE) [Concomitant]

REACTIONS (7)
  - Pleuritic pain [None]
  - Hepatitis [None]
  - Pyrexia [None]
  - Dyspnoea [None]
  - Pulmonary embolism [None]
  - Chest pain [None]
  - Thrombocytopenia [None]
